FAERS Safety Report 6358192-3 (Version None)
Quarter: 2009Q3

REPORT INFORMATION
  Report Type: 
  Country: None (occurrence: None)
  Receive Date: 20090916
  Receipt Date: 20090911
  Transmission Date: 20100115
  Serious: Yes (Hospitalization)
  Sender: FDA-Public Use
  Company Number: US-ELI_LILLY_AND_COMPANY-US200909002951

PATIENT
  Sex: Female

DRUGS (3)
  1. HUMALOG [Suspect]
  2. METFORMIN HCL [Concomitant]
  3. GLUCOVANCE [Concomitant]

REACTIONS (5)
  - ASTHMA [None]
  - BLOOD GLUCOSE INCREASED [None]
  - CENTRAL NERVOUS SYSTEM INFLAMMATION [None]
  - EXOSTOSIS [None]
  - MEMORY IMPAIRMENT [None]
